FAERS Safety Report 6146575-6 (Version None)
Quarter: 2009Q2

REPORT INFORMATION
  Report Type: 
  Country: None (occurrence: None)
  Receive Date: 20090407
  Receipt Date: 20090402
  Transmission Date: 20091009
  Serious: Yes (Hospitalization, Other)
  Sender: FDA-Public Use
  Company Number: US-TEVA-190176USA

PATIENT
  Sex: Female
  Weight: 61 kg

DRUGS (2)
  1. ONXOL [Suspect]
     Indication: BREAST CANCER METASTATIC
     Dosage: EVERY WEEK X3
     Route: 042
     Dates: start: 20071127, end: 20080305
  2. SUNITINIB MALATE (SU011248) [Suspect]
     Indication: BREAST CANCER METASTATIC
     Route: 048
     Dates: start: 20071127, end: 20080319

REACTIONS (6)
  - ANAEMIA [None]
  - DEHYDRATION [None]
  - GENERAL PHYSICAL HEALTH DETERIORATION [None]
  - HYPOKALAEMIA [None]
  - RENAL FAILURE ACUTE [None]
  - THROMBOCYTOPENIA [None]
